FAERS Safety Report 9832907 (Version 1)
Quarter: 2014Q1

REPORT INFORMATION
  Report Type: Spontaneous
  Country: IN (occurrence: IN)
  Receive Date: 20140121
  Receipt Date: 20140121
  Transmission Date: 20141002
  Serious: Yes (Life-Threatening)
  Sender: FDA-Public Use
  Company Number: IN-B.I. PHARMACEUTICALS,INC./RIDGEFIELD-2014-BI-02517IG

PATIENT
  Age: 70 Year
  Sex: Male

DRUGS (4)
  1. DABIGATRAN [Suspect]
     Indication: CEREBROVASCULAR ACCIDENT PROPHYLAXIS
     Dosage: 220 MG
     Route: 048
     Dates: start: 20131231, end: 20140113
  2. DABIGATRAN [Suspect]
     Indication: ATRIAL FIBRILLATION
  3. ANTI ARRYTHMIC [Concomitant]
  4. ANTI HYPERTENSIVE [Concomitant]

REACTIONS (1)
  - Pulmonary embolism [Recovered/Resolved]
